FAERS Safety Report 6356632-7 (Version None)
Quarter: 2009Q3

REPORT INFORMATION
  Report Type: 
  Country: None (occurrence: None)
  Receive Date: 20090910
  Receipt Date: 20090910
  Transmission Date: 20100115
  Serious: Yes (Hospitalization)
  Sender: FDA-Public Use
  Company Number: None

PATIENT
  Sex: Male
  Weight: 68.9467 kg

DRUGS (2)
  1. RANIBIZUMAB 0.5 MG GENENTECH [Suspect]
     Indication: ISCHAEMIA
     Dosage: 0.5 MG ONCE A MONTH OPHTHALMIC
     Route: 047
     Dates: start: 20070108, end: 20090629
  2. RANIBIZUMAB 0.5 MG GENENTECH [Suspect]
     Indication: VENOUS OCCLUSION
     Dosage: 0.5 MG ONCE A MONTH OPHTHALMIC
     Route: 047
     Dates: start: 20070108, end: 20090629

REACTIONS (1)
  - CARDIAC FAILURE CONGESTIVE [None]
